FAERS Safety Report 15790130 (Version 3)
Quarter: 2019Q3

REPORT INFORMATION
  Report Type: Report from Study
  Country: US (occurrence: US)
  Receive Date: 20190104
  Receipt Date: 20190702
  Transmission Date: 20191004
  Serious: No
  Sender: FDA-Public Use
  Company Number: US-SA-2019SA000606

PATIENT
  Age: 26 Year
  Sex: Male

DRUGS (3)
  1. DUPILUMAB [Suspect]
     Active Substance: DUPILUMAB
     Indication: ASTHMA
     Dosage: 600 MG, 1X
     Route: 058
     Dates: start: 201812, end: 201812
  2. DUPILUMAB [Suspect]
     Active Substance: DUPILUMAB
     Dosage: 300 MG, QOW
     Route: 058
     Dates: start: 2019
  3. DUPILUMAB [Suspect]
     Active Substance: DUPILUMAB
     Indication: EOSINOPHILIA
     Dosage: 300 MG, QOW

REACTIONS (5)
  - Pruritus [Unknown]
  - Urticaria [Recovered/Resolved]
  - Asthma [Not Recovered/Not Resolved]
  - Product use in unapproved indication [Unknown]
  - Urticaria [Unknown]

NARRATIVE: CASE EVENT DATE: 201812
